FAERS Safety Report 21960074 (Version 1)
Quarter: 2023Q1

REPORT INFORMATION
  Report Type: Spontaneous
  Country: PT (occurrence: PT)
  Receive Date: 20230206
  Receipt Date: 20230206
  Transmission Date: 20230417
  Serious: Yes (Other)
  Sender: FDA-Public Use
  Company Number: PT-002147023-NVSC2023PT023356

PATIENT
  Age: 66 Year
  Sex: Male

DRUGS (1)
  1. ZOLPIDEM [Suspect]
     Active Substance: ZOLPIDEM TARTRATE
     Indication: Insomnia
     Dosage: 15 DOSAGE FORM, QD (15 TABLETS/DAY)
     Route: 065

REACTIONS (3)
  - Drug abuse [Unknown]
  - Disorientation [Unknown]
  - Memory impairment [Unknown]
